FAERS Safety Report 6746295-0 (Version None)
Quarter: 2010Q2

REPORT INFORMATION
  Report Type: 
  Country: None (occurrence: None)
  Receive Date: 20100526
  Receipt Date: 20100517
  Transmission Date: 20101027
  Serious: Yes (Hospitalization)
  Sender: FDA-Public Use
  Company Number: 1000013504

PATIENT
  Age: 62 Year
  Sex: Female

DRUGS (5)
  1. FOSFOMYCIN (FOSFOMYCIN TROMETAMOL) (GRANULATE) [Suspect]
     Indication: CYSTITIS
     Dosage: 3 GM (3 GM, 1 IN 1 D), ORAL
     Route: 048
     Dates: start: 20100315, end: 20100315
  2. CLAMOXYL(1 GRAM, TABLETS) [Suspect]
     Indication: CYSTITIS
     Dosage: 2 DOSAGE FORMS (1 DOSAGE FORMS,2 IN 1 D), ORAL
     Route: 048
     Dates: start: 20100326, end: 20100401
  3. ENBREL [Concomitant]
  4. FOSAVANCE (TABLETS) [Concomitant]
  5. CACIT VITAMINE D3 [Concomitant]

REACTIONS (12)
  - ANGIOEDEMA [None]
  - ANTINUCLEAR ANTIBODY POSITIVE [None]
  - CONFUSIONAL STATE [None]
  - CONJUNCTIVITIS [None]
  - CULTURE URINE POSITIVE [None]
  - DRUG RASH WITH EOSINOPHILIA AND SYSTEMIC SYMPTOMS [None]
  - ESCHERICHIA TEST POSITIVE [None]
  - GENERAL PHYSICAL HEALTH DETERIORATION [None]
  - KERATITIS [None]
  - LEUKOCYTURIA [None]
  - LYMPHOPENIA [None]
  - PROTEINURIA [None]
